FAERS Safety Report 8431797-1 (Version None)
Quarter: 2012Q2

REPORT INFORMATION
  Report Type: 
  Country: None (occurrence: None)
  Receive Date: 20120613
  Receipt Date: 20120605
  Transmission Date: 20120825
  Serious: Yes (Hospitalization)
  Sender: FDA-Public Use
  Company Number: US-ASTRAZENECA-2011SE41582

PATIENT
  Age: 59 Year
  Sex: Female
  Weight: 102.1 kg

DRUGS (29)
  1. NEXIUM [Suspect]
     Route: 048
  2. NEXIUM [Suspect]
     Route: 048
  3. RISPIDAL [Concomitant]
     Indication: BIPOLAR DISORDER
  4. DAELTRIL [Concomitant]
     Indication: BLADDER DISORDER
  5. SEROQUEL [Concomitant]
     Indication: SOMNOLENCE
  6. NEXIUM [Suspect]
     Dosage: DAILY
     Route: 048
     Dates: start: 20060101
  7. NEXIUM [Suspect]
     Route: 048
  8. NEXIUM [Suspect]
     Route: 048
  9. CITALOPRAM [Concomitant]
  10. DARVOCET [Concomitant]
     Dosage: 50 MG 2-3 DAILY AS NEEDED
  11. NAPROXEN [Concomitant]
     Indication: INFLAMMATION
     Dosage: 500 MG 1-3 DAILY AS NEEDED
  12. NEXIUM [Suspect]
     Dosage: DAILY
     Route: 048
     Dates: start: 20060101
  13. NEXIUM [Suspect]
     Route: 048
  14. NEXIUM [Suspect]
     Route: 048
  15. BISMUTH SUBSALICYLATE [Concomitant]
  16. ARTHROTEC [Concomitant]
     Indication: ARTHRITIS
  17. NEXIUM [Suspect]
     Indication: GASTROOESOPHAGEAL REFLUX DISEASE
     Dosage: TWO PER DAY FOR 2 YEARS AND ONCE PER DAY THEREAFTER
     Route: 048
     Dates: start: 20050101
  18. CALCIUM CARBONATE [Concomitant]
  19. ROLAIDS [Concomitant]
  20. LORTAB [Concomitant]
     Indication: PAIN IN EXTREMITY
     Dosage: 10.5 MG 1 TABLET 4 DAY
  21. NEXIUM [Suspect]
     Indication: NAUSEA
     Dosage: TWO PER DAY FOR 2 YEARS AND ONCE PER DAY THEREAFTER
     Route: 048
     Dates: start: 20050101
  22. NEXIUM [Suspect]
     Indication: VOMITING
     Dosage: TWO PER DAY FOR 2 YEARS AND ONCE PER DAY THEREAFTER
     Route: 048
     Dates: start: 20050101
  23. NEXIUM [Suspect]
     Dosage: DAILY
     Route: 048
     Dates: start: 20060101
  24. TAGAMET [Concomitant]
     Dosage: ONCE DAILY
     Dates: start: 20040101, end: 20040101
  25. XANAX [Concomitant]
  26. GEODON [Concomitant]
     Indication: WEIGHT INCREASED
  27. MORTIN [Concomitant]
     Dosage: 800 MG TWICE DAILY IF NEDDED
  28. PRILOSEC [Concomitant]
     Dosage: ONCE DAILY
     Route: 048
     Dates: start: 20050101, end: 20050101
  29. WELLBUTRIN [Concomitant]
     Indication: DEPRESSION

REACTIONS (9)
  - OSTEOPOROSIS [None]
  - GASTROOESOPHAGEAL REFLUX DISEASE [None]
  - LIMB INJURY [None]
  - PAIN IN EXTREMITY [None]
  - INCORRECT DOSE ADMINISTERED [None]
  - FEMUR FRACTURE [None]
  - FOOT FRACTURE [None]
  - LOWER LIMB FRACTURE [None]
  - BACK PAIN [None]
